FAERS Safety Report 8618410 (Version 5)
Quarter: 2012Q4

REPORT INFORMATION
  Report Type: 
  Country: CO (occurrence: CO)
  Receive Date: 20120617
  Receipt Date: 20120924
  Transmission Date: 20130627
  Serious: Yes (Hospitalization, Disabling, Other)
  Sender: FDA-Public Use
  Company Number: CO-AMGEN-COLSP2012036795

PATIENT
  Age: 66 Year
  Sex: Female

DRUGS (5)
  1. ENBREL [Suspect]
     Indication: RHEUMATOID ARTHRITIS
     Dosage: 50 mg, weekly
     Route: 058
     Dates: start: 20120308
  2. CALCITROL                          /00508501/ [Concomitant]
     Indication: RHEUMATOID ARTHRITIS
     Dosage: 1 capsule once a day orally
     Route: 048
     Dates: start: 201204
  3. CALCIUM WITH VITAMIN D             /01233101/ [Concomitant]
     Indication: RHEUMATOID ARTHRITIS
     Dosage: 1 tablet once a day orally
  4. ACETAMINOPHEN [Concomitant]
     Indication: PAIN
     Dosage: UNK
  5. THYROXIN [Concomitant]
     Dosage: 100 mg, 1x/day
     Dates: start: 1987

REACTIONS (15)
  - Cardiac disorder [Recovering/Resolving]
  - Cardiac discomfort [Recovering/Resolving]
  - Blood pressure fluctuation [Not Recovered/Not Resolved]
  - Hypertension [Not Recovered/Not Resolved]
  - Atrophy [Not Recovered/Not Resolved]
  - Intervertebral disc protrusion [Not Recovered/Not Resolved]
  - Headache [Not Recovered/Not Resolved]
  - Dysstasia [Not Recovered/Not Resolved]
  - Skin discolouration [Not Recovered/Not Resolved]
  - Tremor [Not Recovered/Not Resolved]
  - Head titubation [Not Recovered/Not Resolved]
  - Feeling hot [Not Recovered/Not Resolved]
  - Pain in extremity [Not Recovered/Not Resolved]
  - Fatigue [Not Recovered/Not Resolved]
  - Influenza [Not Recovered/Not Resolved]
